FAERS Safety Report 25937320 (Version 7)
Quarter: 2025Q4

REPORT INFORMATION
  Report Type: Report from Study
  Country: US (occurrence: US)
  Receive Date: 20251017
  Receipt Date: 20251130
  Transmission Date: 20260117
  Serious: Yes (Hospitalization, Other)
  Sender: ABBVIE
  Company Number: US-ABBVIE-6463508

PATIENT
  Age: 78 Year
  Sex: Male
  Weight: 91 kg

DRUGS (13)
  1. VYALEV [Suspect]
     Active Substance: FOSCARBIDOPA\FOSLEVODOPA
     Indication: Parkinson^s disease
     Dosage: LAST ADMIN DATE: 2025
     Route: 058
     Dates: start: 20250822
  2. VYALEV [Suspect]
     Active Substance: FOSCARBIDOPA\FOSLEVODOPA
     Dosage: FREQUENCY : CONTINUOUS 24-HOUR INFUSION?FIRST ADMIN DATE AND LAST ADMIN DATE: 2025
     Route: 058
  3. VYALEV [Suspect]
     Active Substance: FOSCARBIDOPA\FOSLEVODOPA
     Dosage: FIRST  ADMIN DATE: 2025
     Route: 058
  4. OMEPRAZOLE [Concomitant]
     Active Substance: OMEPRAZOLE
     Indication: Product used for unknown indication
     Dosage: 30 MINUTES BEFORE MORNING MEAL
     Route: 048
  5. ARICEPT [Concomitant]
     Active Substance: DONEPEZIL HYDROCHLORIDE
     Indication: Product used for unknown indication
     Dosage: AT BEDTIME
     Route: 048
  6. NORTRIPTYLINE HYDROCHLORIDE [Concomitant]
     Active Substance: NORTRIPTYLINE HYDROCHLORIDE
     Indication: Product used for unknown indication
     Dosage: 3 TABLETS AT NIGHT
     Route: 048
  7. CARBIDOPA LEVODOPA [Concomitant]
     Active Substance: CARBIDOPA\LEVODOPA
     Indication: Product used for unknown indication
     Dosage: 50-200 MG 90 DAYS ONCE IN MORNING AND ONCE AT NIGHT.  ER
     Route: 048
     Dates: start: 20241203
  8. CARBIDOPA LEVODOPA [Concomitant]
     Active Substance: CARBIDOPA\LEVODOPA
     Indication: Product used for unknown indication
     Dosage: 25-100 MG 90 DAYS
     Route: 048
     Dates: start: 20241203
  9. PREGABALIN [Concomitant]
     Active Substance: PREGABALIN
     Indication: Product used for unknown indication
     Dosage: AT BEDTIME
  10. LEVOTHYROXINE SODIUM [Concomitant]
     Active Substance: LEVOTHYROXINE SODIUM
     Indication: Product used for unknown indication
     Dosage: IN MORNING ON EMPTY STOMACH
     Route: 048
  11. ACETAMINOPHEN\HYDROCODONE [Concomitant]
     Active Substance: ACETAMINOPHEN\HYDROCODONE
     Indication: Product used for unknown indication
     Dosage: 5-325 MG ONE TABLET AS NEEDED
     Route: 048
  12. HYDROCODONE BITARTRATE [Concomitant]
     Active Substance: HYDROCODONE BITARTRATE
     Indication: Product used for unknown indication
  13. CARBIDOPA [Concomitant]
     Active Substance: CARBIDOPA
     Indication: Product used for unknown indication

REACTIONS (16)
  - Catheter site cellulitis [Unknown]
  - Ascites [Not Recovered/Not Resolved]
  - Constipation [Unknown]
  - Malignant melanoma [Unknown]
  - Catheter site discolouration [Not Recovered/Not Resolved]
  - Catheter site discharge [Unknown]
  - Catheter site haemorrhage [Not Recovered/Not Resolved]
  - Catheter site hypertrophy [Not Recovered/Not Resolved]
  - Device issue [Recovering/Resolving]
  - Squamous cell carcinoma [Unknown]
  - On and off phenomenon [Unknown]
  - Catheter site related reaction [Recovering/Resolving]
  - Catheter site rash [Not Recovered/Not Resolved]
  - Catheter site rash [Recovered/Resolved]
  - Hyperhidrosis [Unknown]
  - Catheter site induration [Not Recovered/Not Resolved]

NARRATIVE: CASE EVENT DATE: 20250101
